FAERS Safety Report 5954703-8 (Version None)
Quarter: 2008Q4

REPORT INFORMATION
  Report Type: 
  Country: None (occurrence: None)
  Receive Date: 20081117
  Receipt Date: 20081112
  Transmission Date: 20090506
  Serious: Yes (Other)
  Sender: FDA-Public Use
  Company Number: PHEH2008US10208

PATIENT
  Age: 75 Year

DRUGS (1)
  1. COMTAN [Suspect]
     Dosage: UNK

REACTIONS (3)
  - DIZZINESS [None]
  - FALL [None]
  - JOINT SPRAIN [None]
